FAERS Safety Report 5313354-9 (Version None)
Quarter: 2007Q1

REPORT INFORMATION
  Report Type: 
  Country: None (occurrence: None)
  Receive Date: 20070201
  Receipt Date: 20061212
  Transmission Date: 20070707
  Serious: No
  Sender: FDA-Public Use
  Company Number: VNL_0339_2006

PATIENT
  Age: 84 Year
  Sex: Male
  Weight: 81.6475 kg

DRUGS (9)
  1. APOKYN [Suspect]
     Indication: PARKINSON'S DISEASE
     Dosage: 0.2 ML QDAY, SC
     Route: 058
     Dates: start: 20061110, end: 20061201
  2. APOKYN [Suspect]
     Indication: PARKINSON'S DISEASE
     Dosage: 0.3 ML QDAY,SC
     Route: 058
     Dates: start: 20061201
  3. TIGAN [Concomitant]
  4. DIOVAN [Concomitant]
  5. COREG [Concomitant]
  6. DIGITEK [Concomitant]
  7. SINEMET [Concomitant]
  8. ZOCOR [Concomitant]
  9. MULTIPLE SUPPLEMENTS [Concomitant]

REACTIONS (5)
  - ASTHENIA [None]
  - DIZZINESS [None]
  - DRUG INEFFECTIVE [None]
  - HYPERHIDROSIS [None]
  - PHARMACEUTICAL PRODUCT COMPLAINT [None]
